FAERS Safety Report 4511077-7 (Version None)
Quarter: 2004Q4

REPORT INFORMATION
  Report Type: 
  Country: None (occurrence: None)
  Receive Date: 20041015
  Receipt Date: 20040212
  Transmission Date: 20050328
  Serious: Yes (Other)
  Sender: FDA-Public Use
  Company Number: 2004009795

PATIENT
  Sex: Female

DRUGS (6)
  1. NEURONTIN [Suspect]
     Indication: BACK PAIN
     Dosage: 1200 MG (QID), ORAL
     Route: 048
  2. VICODIN [Concomitant]
  3. TIZANIDINE HCL [Concomitant]
  4. TRAZODONE HCL [Concomitant]
  5. MODAFINIL [Concomitant]
  6. PREDNISONE [Concomitant]

REACTIONS (2)
  - DEPRESSION [None]
  - SUICIDAL IDEATION [None]
